FAERS Safety Report 17691850 (Version 2)
Quarter: 2020Q2

REPORT INFORMATION
  Report Type: Spontaneous
  Country: DE (occurrence: DE)
  Receive Date: 20200422
  Receipt Date: 20200427
  Transmission Date: 20200714
  Serious: Yes (Death, Other)
  Sender: FDA-Public Use
  Company Number: DE-BRISTOL-MYERS SQUIBB COMPANY-BMS-2020-021142

PATIENT
  Age: 80 Year
  Sex: Male

DRUGS (2)
  1. ELIQUIS [Suspect]
     Active Substance: APIXABAN
     Indication: PRODUCT USED FOR UNKNOWN INDICATION
     Dosage: UNK
     Route: 065
  2. URAPIDIL [Concomitant]
     Active Substance: URAPIDIL
     Indication: BLOOD PRESSURE INCREASED
     Route: 065

REACTIONS (6)
  - Oedema [Unknown]
  - Aspiration [Fatal]
  - Carotid artery stenosis [Unknown]
  - Focal dyscognitive seizures [Unknown]
  - Cerebral haemorrhage [Unknown]
  - Respiratory disorder [Fatal]

NARRATIVE: CASE EVENT DATE: 20200131
